FAERS Safety Report 14554962 (Version 1)
Quarter: 2018Q1

REPORT INFORMATION
  Report Type: Spontaneous
  Country: US (occurrence: US)
  Receive Date: 20180220
  Receipt Date: 20180220
  Transmission Date: 20180509
  Serious: No
  Sender: FDA-Public Use
  Company Number: US-TAIHO ONCOLOGY INC-EU-2018-00211

PATIENT
  Sex: Female

DRUGS (5)
  1. LONSURF [Suspect]
     Active Substance: TIPIRACIL HYDROCHLORIDE\TRIFLURIDINE
     Indication: COLON CANCER
     Route: 048
     Dates: start: 20170726, end: 20171006
  2. POTASSIUM [Concomitant]
     Active Substance: POTASSIUM
     Dosage: NI
  3. NORVASC [Concomitant]
     Active Substance: AMLODIPINE BESYLATE
     Dosage: NI
  4. LORAZEPAM. [Concomitant]
     Active Substance: LORAZEPAM
     Dosage: NI
  5. TYLENOL [Concomitant]
     Active Substance: ACETAMINOPHEN
     Dosage: NI

REACTIONS (3)
  - Disease progression [Unknown]
  - Respiratory disorder [Unknown]
  - Drug ineffective [Unknown]

NARRATIVE: CASE EVENT DATE: 2017
